FAERS Safety Report 5981140-2 (Version None)
Quarter: 2008Q4

REPORT INFORMATION
  Report Type: 
  Country: None (occurrence: None)
  Receive Date: 20081202
  Receipt Date: 20081202
  Transmission Date: 20090506
  Serious: Yes (Life-Threatening, Other)
  Sender: FDA-Public Use
  Company Number: None

PATIENT
  Age: 39 Year
  Sex: Male
  Weight: 111.1313 kg

DRUGS (1)
  1. LEVOTHYROXINE SODIUM [Suspect]
     Indication: HYPOTHYROIDISM
     Dosage: 25MCG 1XDAY PO
     Route: 048
     Dates: start: 20081120, end: 20081126

REACTIONS (4)
  - CHEST PAIN [None]
  - CYANOSIS [None]
  - DYSPNOEA [None]
  - RASH [None]
